FAERS Safety Report 8295718-7 (Version None)
Quarter: 2012Q2

REPORT INFORMATION
  Report Type: 
  Country: None (occurrence: None)
  Receive Date: 20120418
  Receipt Date: 20120412
  Transmission Date: 20120825
  Serious: Yes (Death)
  Sender: FDA-Public Use
  Company Number: PHHY2012TR031411

PATIENT
  Age: 4 Month
  Sex: Male

DRUGS (5)
  1. PHENOBARBITAL TAB [Concomitant]
     Indication: GRAND MAL CONVULSION
     Dosage: UNK UKN, UNK
  2. CALCITONIN SALMON [Suspect]
     Indication: HYPERCALCAEMIA
     Dosage: 10 U/KG/D
  3. FUROSEMIDE [Concomitant]
     Indication: HYPERCALCAEMIA
     Dosage: UNK UKN, UNK
  4. PREDNISOLONE [Suspect]
     Indication: HYPERCALCAEMIA
     Dosage: 2 MG/KG/D
  5. CLONAZEPAM [Concomitant]
     Dosage: UNK UKN, UNK

REACTIONS (2)
  - LUNG INFECTION [None]
  - DRUG RESISTANCE [None]
